FAERS Safety Report 7148141-2 (Version None)
Quarter: 2010Q4

REPORT INFORMATION
  Report Type: 
  Country: None (occurrence: None)
  Receive Date: 20101209
  Receipt Date: 20101202
  Transmission Date: 20110411
  Serious: Yes (Death, Other)
  Sender: FDA-Public Use
  Company Number: JP-ALEXION-A201001538

PATIENT
  Age: 72 Year
  Sex: Male

DRUGS (2)
  1. SOLIRIS [Suspect]
     Indication: PAROXYSMAL NOCTURNAL HAEMOGLOBINURIA
     Dosage: 900 MG, Q2W
     Dates: start: 20100623, end: 20101027
  2. BLOOD AND RELATED PRODUCTS [Concomitant]

REACTIONS (3)
  - BRAIN CONTUSION [None]
  - CEREBRAL HAEMORRHAGE [None]
  - FALL [None]
